FAERS Safety Report 15936823 (Version 1)
Quarter: 2019Q1

REPORT INFORMATION
  Report Type: Spontaneous
  Country: KZ (occurrence: KZ)
  Receive Date: 20190208
  Receipt Date: 20190208
  Transmission Date: 20190417
  Serious: Yes (Death, Other)
  Sender: FDA-Public Use
  Company Number: KZ-ROCHE-2260527

PATIENT
  Age: 2 Year
  Sex: Female

DRUGS (1)
  1. GANCICLOVIR. [Suspect]
     Active Substance: GANCICLOVIR
     Indication: CYTOMEGALOVIRUS INFECTION
     Dosage: 10 DAYS COURSE
     Route: 065

REACTIONS (5)
  - Seizure [Unknown]
  - Pneumonia [Fatal]
  - Renal failure [Fatal]
  - Coma [Fatal]
  - Sepsis [Fatal]

NARRATIVE: CASE EVENT DATE: 201901
